FAERS Safety Report 9165597 (Version 2)
Quarter: 2013Q2

REPORT INFORMATION
  Report Type: Spontaneous
  Country: CA (occurrence: CA)
  Receive Date: 20130315
  Receipt Date: 20130418
  Transmission Date: 20140414
  Serious: Yes (Hospitalization)
  Sender: FDA-Public Use
  Company Number: CA-SANOFI-AVENTIS-2013SA023196

PATIENT
  Age: 67 Year
  Sex: Female

DRUGS (12)
  1. PLAVIX [Suspect]
     Indication: STENT PLACEMENT
     Route: 048
     Dates: start: 2003, end: 201303
  2. ESTROGENS CONJUGATED [Concomitant]
     Indication: BLADDER DISORDER
     Dates: end: 2012
  3. PANTOPRAZOLE SODIUM [Concomitant]
     Indication: GASTRIC DISORDER
  4. DETROL [Concomitant]
  5. ISOSORBIDE MONONITRATE [Concomitant]
     Indication: CARDIAC DISORDER
  6. BROMAZEPAM [Concomitant]
  7. BROMAZEPAM [Concomitant]
  8. DILTIAZEM [Concomitant]
     Indication: HYPERTENSION
  9. BISOPROLOL [Concomitant]
  10. ENALAPRIL [Concomitant]
  11. VITAMIN B12 [Concomitant]
  12. HYTRIN [Concomitant]
     Indication: BLOOD PRESSURE

REACTIONS (6)
  - Haematochezia [Unknown]
  - Fatigue [Not Recovered/Not Resolved]
  - Diarrhoea [Recovering/Resolving]
  - Abdominal pain [Recovered/Resolved]
  - Hot flush [Unknown]
  - Gastrointestinal haemorrhage [Unknown]
